FAERS Safety Report 18358200 (Version 2)
Quarter: 2020Q4

REPORT INFORMATION
  Report Type: Other
  Country: NL (occurrence: NL)
  Receive Date: 20201007
  Receipt Date: 20201009
  Transmission Date: 20210114
  Serious: Yes (Life-Threatening, Hospitalization)
  Sender: FDA-Public Use
  Company Number: NL-ROCHE-455446

PATIENT
  Age: 56 Year

DRUGS (3)
  1. OXYCONTIN [Concomitant]
     Active Substance: OXYCODONE HYDROCHLORIDE
     Dosage: 20 MG, 2X/DAY
  2. TRASTUZUMAB. [Suspect]
     Active Substance: TRASTUZUMAB
     Indication: BREAST CANCER STAGE IV
     Dosage: UNK
     Route: 065
  3. DOCETAXEL. [Concomitant]
     Active Substance: DOCETAXEL
     Indication: BREAST CANCER STAGE IV
     Dosage: UNK, EVERY 3 WEEKS

REACTIONS (3)
  - Drug hypersensitivity [Recovered/Resolved]
  - Interstitial lung disease [Unknown]
  - Pneumonitis [Recovered/Resolved]
